FAERS Safety Report 4938654-3 (Version None)
Quarter: 2006Q1

REPORT INFORMATION
  Report Type: 
  Country: None (occurrence: None)
  Receive Date: 20060127
  Receipt Date: 20051216
  Transmission Date: 20060701
  Serious: Yes (Other)
  Sender: FDA-Public Use
  Company Number: 2005146354

PATIENT
  Age: 85 Year
  Sex: Female
  Weight: 63.9572 kg

DRUGS (2)
  1. LYRICA [Suspect]
     Indication: NEUROPATHY
     Dosage: 75 MG (75 MG,1 IN 1 D),ORAL
     Route: 048
     Dates: start: 20050927, end: 20050927
  2. ANTIHYPERTENSIVES (ANTIHYPERTENSIVES) [Concomitant]

REACTIONS (5)
  - DISABILITY [None]
  - DIZZINESS [None]
  - FATIGUE [None]
  - FEELING ABNORMAL [None]
  - MENTAL DISORDER [None]
